FAERS Safety Report 21787730 (Version 1)
Quarter: 2022Q4

REPORT INFORMATION
  Report Type: Spontaneous
  Country: CN (occurrence: None)
  Receive Date: 20221228
  Receipt Date: 20221228
  Transmission Date: 20230112
  Serious: Yes (Other)
  Sender: FDA-Public Use
  Company Number: 2022A415733

PATIENT
  Age: 24722 Day
  Sex: Male
  Weight: 60 kg

DRUGS (1)
  1. BRILINTA [Suspect]
     Active Substance: TICAGRELOR
     Indication: Arteriosclerosis
     Route: 048
     Dates: start: 20221207, end: 20221208

REACTIONS (2)
  - Blood pressure increased [Unknown]
  - Dyspnoea [Recovering/Resolving]

NARRATIVE: CASE EVENT DATE: 20221208
